FAERS Safety Report 7224612-5 (Version None)
Quarter: 2011Q1

REPORT INFORMATION
  Report Type: 
  Country: None (occurrence: None)
  Receive Date: 20110113
  Receipt Date: 20110105
  Transmission Date: 20110831
  Serious: Yes (Life-Threatening)
  Sender: FDA-Public Use
  Company Number: CA-BAXTER-2011BH000464

PATIENT
  Age: 5 Year
  Sex: Male

DRUGS (2)
  1. DIPHENHYDRAMINE [Concomitant]
     Indication: PREMEDICATION
     Route: 042
  2. GAMMAGARD LIQUID [Suspect]
     Indication: PRODUCT USED FOR UNKNOWN INDICATION
     Route: 065
     Dates: start: 20101231, end: 20101231

REACTIONS (9)
  - HYPOXIA [None]
  - RESPIRATORY RATE INCREASED [None]
  - NAUSEA [None]
  - CHILLS [None]
  - HEART RATE INCREASED [None]
  - ANAPHYLACTIC REACTION [None]
  - BODY TEMPERATURE INCREASED [None]
  - VOMITING [None]
  - BLOOD PRESSURE DECREASED [None]
